FAERS Safety Report 13047479 (Version 4)
Quarter: 2017Q2

REPORT INFORMATION
  Report Type: Spontaneous
  Country: US (occurrence: US)
  Receive Date: 20161220
  Receipt Date: 20170516
  Transmission Date: 20170830
  Serious: Yes (Death, Hospitalization, Other)
  Sender: FDA-Public Use
  Company Number: US-BAUSCH-BL-2016-031609

PATIENT
  Age: 75 Year
  Sex: Male

DRUGS (2)
  1. XIFAXAN [Suspect]
     Active Substance: RIFAXIMIN
     Indication: HEPATIC FAILURE
     Route: 065
  2. SEROQUEL [Suspect]
     Active Substance: QUETIAPINE FUMARATE
     Indication: PRODUCT USED FOR UNKNOWN INDICATION
     Route: 065

REACTIONS (14)
  - Lethargy [Unknown]
  - Rectal haemorrhage [Unknown]
  - Depressed level of consciousness [Unknown]
  - Contusion [Unknown]
  - Oedema peripheral [Unknown]
  - Tenderness [Unknown]
  - Ammonia decreased [Unknown]
  - Fall [Unknown]
  - Back disorder [Unknown]
  - Ammonia increased [Unknown]
  - Mobility decreased [Unknown]
  - Death [Fatal]
  - Drug intolerance [Unknown]
  - Parkinson^s disease [Unknown]

NARRATIVE: CASE EVENT DATE: 20170330
